FAERS Safety Report 19628944 (Version 2)
Quarter: 2022Q3

REPORT INFORMATION
  Report Type: Other
  Country: US (occurrence: US)
  Receive Date: 20210728
  Receipt Date: 20220922
  Transmission Date: 20221027
  Serious: Yes (Other)
  Sender: FDA-Public Use
  Company Number: US-APOTEX-2021AP025937

PATIENT
  Age: 43 Year
  Sex: Male

DRUGS (6)
  1. RANITIDINE HYDROCHLORIDE [Suspect]
     Active Substance: RANITIDINE HYDROCHLORIDE
     Indication: Dyspepsia
     Dosage: UNK UNK, TID, PRIOR TO MEALS
     Route: 048
     Dates: start: 199301, end: 2010
  2. RANITIDINE HYDROCHLORIDE [Suspect]
     Active Substance: RANITIDINE HYDROCHLORIDE
     Dosage: 150 MILLIGRAM, PRN, 3 TO 5 PER WEEK
     Route: 048
     Dates: start: 2010, end: 201910
  3. RANITIDINE [Suspect]
     Active Substance: RANITIDINE
     Indication: Dyspepsia
     Dosage: UNK, TID, PRIOR TO MEALS
     Route: 048
     Dates: start: 199301, end: 2010
  4. RANITIDINE [Suspect]
     Active Substance: RANITIDINE
     Dosage: 150 MILLIGRAM, PRN, 3-5X PER WEEK
     Route: 048
     Dates: start: 2010, end: 201910
  5. ZANTAC [Suspect]
     Active Substance: RANITIDINE HYDROCHLORIDE
     Indication: Dyspepsia
     Dosage: UNK, TID, PRIOR TO MEAL
     Route: 048
     Dates: start: 199301, end: 2010
  6. ZANTAC [Suspect]
     Active Substance: RANITIDINE HYDROCHLORIDE
     Dosage: 150 MILLIGRAM, PRN, 3-5X PER WEEK
     Route: 048
     Dates: start: 2010, end: 201910

REACTIONS (2)
  - Colorectal cancer [Unknown]
  - Prostate cancer [Unknown]

NARRATIVE: CASE EVENT DATE: 20150301
